FAERS Safety Report 12114925 (Version 3)
Quarter: 2016Q1

REPORT INFORMATION
  Report Type: Spontaneous
  Country: US (occurrence: US)
  Receive Date: 20160225
  Receipt Date: 20160307
  Transmission Date: 20160526
  Serious: Yes (Other)
  Sender: FDA-Public Use
  Company Number: US-ACTELION PHARMACEUTICALS US, INC.-A-NJ2016-131455

PATIENT
  Age: 1 Month
  Sex: Male

DRUGS (8)
  1. PREDNISOLONE. [Concomitant]
     Active Substance: PREDNISOLONE
  2. PROGRAF [Concomitant]
     Active Substance: TACROLIMUS\TACROLIMUS ANHYDROUS
  3. LASIX [Concomitant]
     Active Substance: FUROSEMIDE
  4. IMURAN [Concomitant]
     Active Substance: AZATHIOPRINE
  5. MAGNESIUM [Concomitant]
     Active Substance: MAGNESIUM
  6. VELETRI [Suspect]
     Active Substance: EPOPROSTENOL
     Indication: EXPOSURE DURING PREGNANCY
     Dosage: 13 NG/KG, PER MIN
     Route: 064
     Dates: start: 20151009
  7. ASPIRIN. [Concomitant]
     Active Substance: ASPIRIN
  8. METOPROLOL SUCCINATE. [Concomitant]
     Active Substance: METOPROLOL SUCCINATE

REACTIONS (2)
  - Maternal exposure during pregnancy [Unknown]
  - Premature baby [Recovered/Resolved]
